FAERS Safety Report 10091036 (Version 1)
Quarter: 2014Q2

REPORT INFORMATION
  Report Type: Spontaneous
  Country: US (occurrence: US)
  Receive Date: 20140421
  Receipt Date: 20140421
  Transmission Date: 20141212
  Serious: Yes (Other)
  Sender: FDA-Public Use
  Company Number: US-TEVA-476843USA

PATIENT
  Age: 35 Year
  Sex: Female

DRUGS (1)
  1. PARAGARD 380A [Suspect]
     Indication: CONTRACEPTION
     Route: 015
     Dates: start: 2010, end: 2014

REACTIONS (4)
  - Abortion incomplete [Recovered/Resolved]
  - Haemodynamic instability [Recovered/Resolved]
  - Vaginal haemorrhage [Unknown]
  - Device expulsion [Recovered/Resolved]
